FAERS Safety Report 5735379-1 (Version None)
Quarter: 2008Q2

REPORT INFORMATION
  Report Type: 
  Country: None (occurrence: None)
  Receive Date: 20080508
  Receipt Date: 20080508
  Transmission Date: 20081010
  Serious: Yes (Other)
  Sender: FDA-Public Use
  Company Number: None

PATIENT
  Age: 11 Year
  Sex: Female
  Weight: 37.6486 kg

DRUGS (1)
  1. ALLEGRA [Suspect]
     Indication: CONJUNCTIVITIS ALLERGIC
     Dosage: 60MG TWICE DAILY PO
     Route: 048
     Dates: start: 20080115, end: 20080501

REACTIONS (6)
  - ABDOMINAL PAIN UPPER [None]
  - ALOPECIA [None]
  - ANXIETY [None]
  - HEADACHE [None]
  - SOMNOLENCE [None]
  - WEIGHT DECREASED [None]
